FAERS Safety Report 5095235-1 (Version None)
Quarter: 2006Q3

REPORT INFORMATION
  Report Type: 
  Country: None (occurrence: None)
  Receive Date: 20060901
  Receipt Date: 20060825
  Transmission Date: 20061208
  Serious: Yes (Other)
  Sender: FDA-Public Use
  Company Number: PHEH2006US11018

PATIENT
  Age: 71 Year
  Sex: Female

DRUGS (3)
  1. COMTAN [Suspect]
     Indication: PARKINSON'S DISEASE
     Dosage: 100 MG, QID
     Route: 048
  2. COMTAN [Suspect]
     Dosage: 100 MG, BID
     Route: 048
  3. COMTAN [Suspect]
     Dosage: 200 MG, QID
     Route: 048
     Dates: start: 20060720

REACTIONS (2)
  - BLOOD PRESSURE INCREASED [None]
  - HOT FLUSH [None]
